FAERS Safety Report 22392698 (Version 2)
Quarter: 2023Q2

REPORT INFORMATION
  Report Type: Report from Study
  Country: US (occurrence: US)
  Receive Date: 20230601
  Receipt Date: 20230605
  Transmission Date: 20230721
  Serious: No
  Sender: FDA-Public Use
  Company Number: US-002147023-NVSC2023US123886

PATIENT
  Sex: Male
  Weight: 97.52 kg

DRUGS (5)
  1. COSENTYX [Suspect]
     Active Substance: SECUKINUMAB
     Indication: Hidradenitis
     Dosage: 150 MG/ML
     Route: 058
  2. METHOTREXATE [Interacting]
     Active Substance: METHOTREXATE
     Indication: Hidradenitis
     Dosage: UNK
     Route: 065
  3. CLINDAMYCIN [Suspect]
     Active Substance: CLINDAMYCIN
     Indication: Hidradenitis
     Dosage: UNK UNK, BID
     Route: 061
  4. METFORMIN [Suspect]
     Active Substance: METFORMIN HYDROCHLORIDE
     Indication: Hidradenitis
     Dosage: 500 MG, QD
     Route: 048
  5. ISOTRETINOIN [Suspect]
     Active Substance: ISOTRETINOIN
     Route: 048

REACTIONS (3)
  - Contraindicated product administered [Unknown]
  - Product use in unapproved indication [Unknown]
  - Therapeutic product ineffective [Unknown]
